FAERS Safety Report 10989949 (Version 2)
Quarter: 2015Q3

REPORT INFORMATION
  Report Type: Spontaneous
  Country: FR (occurrence: FR)
  Receive Date: 20150406
  Receipt Date: 20150803
  Transmission Date: 20151125
  Serious: Yes (Other)
  Sender: FDA-Public Use
  Company Number: FR-JNJFOC-20150321834

PATIENT
  Age: 67 Year
  Sex: Female
  Weight: 72.11 kg

DRUGS (6)
  1. COUMADIN [Concomitant]
     Active Substance: WARFARIN SODIUM
     Route: 065
  2. XARELTO [Suspect]
     Active Substance: RIVAROXABAN
     Indication: ATRIAL FIBRILLATION
     Route: 065
     Dates: start: 201406, end: 201410
  3. XARELTO [Suspect]
     Active Substance: RIVAROXABAN
     Indication: CEREBROVASCULAR ACCIDENT PROPHYLAXIS
     Route: 065
     Dates: start: 201406, end: 201410
  4. TEMERIT [Concomitant]
     Active Substance: NEBIVOLOL
     Dosage: ONE TAB IN THE MORNING AND ONE IN THE EVENING
     Route: 065
  5. TIPIFARNIB [Concomitant]
     Active Substance: TIPIFARNIB
     Dosage: 10/20 ONE IN THE MORNING
     Route: 065
  6. LOVENOX [Concomitant]
     Active Substance: ENOXAPARIN SODIUM
     Dosage: 0.6 ONE INJECTION IN THE MORNING AND ONE INJECTION IN THE EVENING UNTIL OBTAINING 2.5
     Route: 065

REACTIONS (3)
  - Atrial thrombosis [Unknown]
  - Treatment failure [Unknown]
  - Drug ineffective [Unknown]

NARRATIVE: CASE EVENT DATE: 201410
